FAERS Safety Report 16589601 (Version 2)
Quarter: 2020Q4

REPORT INFORMATION
  Report Type: Spontaneous
  Country: FR (occurrence: FR)
  Receive Date: 20190718
  Receipt Date: 20201209
  Transmission Date: 20210113
  Serious: Yes (Hospitalization)
  Sender: FDA-Public Use
  Company Number: FR-ROCHE-2355507

PATIENT
  Age: 16 Year
  Sex: Female
  Weight: 71 kg

DRUGS (1)
  1. XOLAIR [Suspect]
     Active Substance: OMALIZUMAB
     Indication: ASTHMA
     Route: 058
     Dates: start: 201802, end: 201811

REACTIONS (4)
  - Anaphylactic reaction [Recovered/Resolved]
  - Asthmatic crisis [Recovered/Resolved]
  - Rash macular [Recovered/Resolved]
  - Injection site reaction [Recovered/Resolved]

NARRATIVE: CASE EVENT DATE: 201803
